FAERS Safety Report 17254059 (Version 2)
Quarter: 2020Q1

REPORT INFORMATION
  Report Type: Spontaneous
  Country: FR (occurrence: FR)
  Receive Date: 20200109
  Receipt Date: 20200211
  Transmission Date: 20200409
  Serious: Yes (Other)
  Sender: FDA-Public Use
  Company Number: FR-MYLANLABS-2020M1002060

PATIENT
  Age: 39 Year
  Sex: Female
  Weight: 55 kg

DRUGS (7)
  1. BENDAMUSTINE HYDROCHLORIDE. [Suspect]
     Active Substance: BENDAMUSTINE HYDROCHLORIDE
     Indication: CHRONIC LYMPHOCYTIC LEUKAEMIA
     Dosage: UNK UNK, CYCLIC
     Route: 042
  2. VORICONAZOLE. [Suspect]
     Active Substance: VORICONAZOLE
     Indication: PRODUCT USED FOR UNKNOWN INDICATION
     Dosage: 400 MG THREE TIMES A DAY [T.I.D.]; 7 MG/KG T.I.D.
  3. VORICONAZOLE. [Suspect]
     Active Substance: VORICONAZOLE
     Dosage: 650 MG PER DAY DIVIDED INTO 2 INTAKES
     Route: 065
  4. VORICONAZOLE. [Suspect]
     Active Substance: VORICONAZOLE
     Dosage: 300 MILLIGRAM, QD
  5. CASPOFUNGIN [Concomitant]
     Active Substance: CASPOFUNGIN
     Indication: CEREBRAL ASPERGILLOSIS
     Dosage: UNK
     Route: 065
  6. BENDAMUSTINE [Concomitant]
     Active Substance: BENDAMUSTINE
     Indication: CHRONIC LYMPHOCYTIC LEUKAEMIA
     Dosage: ONE CYCLE
     Route: 065
  7. AMPHOTERICIN B. [Concomitant]
     Active Substance: AMPHOTERICIN B
     Indication: CEREBRAL ASPERGILLOSIS
     Dosage: UNK, Q2W
     Route: 065

REACTIONS (6)
  - Cerebral aspergillosis [Recovered/Resolved]
  - Drug level below therapeutic [Not Recovered/Not Resolved]
  - Cholestasis [Unknown]
  - Treatment failure [Recovered/Resolved]
  - Generalised tonic-clonic seizure [Unknown]
  - Neutropenia [Unknown]
